FAERS Safety Report 18663478 (Version 4)
Quarter: 2021Q4

REPORT INFORMATION
  Report Type: Report from Study
  Country: US (occurrence: US)
  Receive Date: 20201224
  Receipt Date: 20211209
  Transmission Date: 20220303
  Serious: Yes (Hospitalization, Other)
  Sender: FDA-Public Use
  Company Number: US-SEATTLE GENETICS-2020SGN04936

PATIENT
  Sex: Female

DRUGS (6)
  1. TUCATINIB [Suspect]
     Active Substance: TUCATINIB
     Indication: Breast cancer female
     Dosage: 300 MG, BID
     Route: 065
     Dates: start: 20201020
  2. TUCATINIB [Suspect]
     Active Substance: TUCATINIB
     Dosage: 300 MG, BID
     Route: 065
  3. TUCATINIB [Suspect]
     Active Substance: TUCATINIB
     Dosage: 300 MG, BID
     Route: 065
  4. TUCATINIB [Suspect]
     Active Substance: TUCATINIB
     Dosage: 200 MG, BID
     Route: 065
  5. TUCATINIB [Suspect]
     Active Substance: TUCATINIB
     Dosage: 200 MG, BID
     Route: 065
  6. TUCATINIB [Suspect]
     Active Substance: TUCATINIB
     Dosage: UNK
     Route: 065

REACTIONS (10)
  - Dyspnoea [Unknown]
  - Pneumonitis [Unknown]
  - Pneumonia [Recovered/Resolved]
  - Flatulence [Unknown]
  - Unevaluable event [Unknown]
  - Dizziness [Unknown]
  - Hospice care [Unknown]
  - Lymphadenopathy [Unknown]
  - Stomatitis [Unknown]
  - Diarrhoea [Unknown]
